FAERS Safety Report 22838388 (Version 2)
Quarter: 2023Q4

REPORT INFORMATION
  Report Type: Spontaneous
  Country: US (occurrence: US)
  Receive Date: 20230818
  Receipt Date: 20231017
  Transmission Date: 20240110
  Serious: Yes (Other)
  Sender: FDA-Public Use
  Company Number: US-JNJFOC-20230830985

PATIENT
  Sex: Female

DRUGS (8)
  1. TYLENOL EXTRA STRENGTH [Suspect]
     Active Substance: ACETAMINOPHEN
     Indication: Herpes zoster
     Dosage: 1-2 EVERY 8 HOURS, 6 PILLS DAILY INITIALLY. AT THE END OF SHINGLES, ONLY 1 EVERY 8 HOURS. ~40/WEEK
     Route: 064
     Dates: start: 201911, end: 201912
  2. TYLENOL EXTRA STRENGTH [Suspect]
     Active Substance: ACETAMINOPHEN
     Indication: Pain
  3. TYLENOL REGULAR STRENGTH [Suspect]
     Active Substance: ACETAMINOPHEN
     Indication: Herpes zoster
     Dosage: IN BETWEEN EXTRA STRENGTH DOSES DURING EXTREME PERIOD OF PAIN DURING SHINGLES.
     Route: 064
  4. TYLENOL REGULAR STRENGTH [Suspect]
     Active Substance: ACETAMINOPHEN
     Indication: Pain
  5. TYLENOL [Suspect]
     Active Substance: ACETAMINOPHEN
     Indication: Herpes zoster
     Route: 064
     Dates: start: 201501
  6. XYLOCAINE [Concomitant]
     Active Substance: LIDOCAINE HYDROCHLORIDE
     Indication: Herpes zoster
     Route: 065
     Dates: start: 2015
  7. XYLOCAINE [Concomitant]
     Active Substance: LIDOCAINE HYDROCHLORIDE
     Dosage: 1-2 ML TOPICALLY TWICE A DAY AS NEEDED
     Route: 061
     Dates: start: 201911, end: 201912
  8. VALACYCLOVIR [Concomitant]
     Active Substance: VALACYCLOVIR HYDROCHLORIDE
     Indication: Pregnancy
     Dosage: 1 GRAM TABLET, 2X DAILY
     Route: 065
     Dates: start: 201903, end: 201912

REACTIONS (2)
  - Autism spectrum disorder [Unknown]
  - Foetal exposure during pregnancy [Unknown]

NARRATIVE: CASE EVENT DATE: 20190101
